FAERS Safety Report 9120576 (Version 2)
Quarter: 2013Q1

REPORT INFORMATION
  Report Type: Spontaneous
  Country: DE (occurrence: CA)
  Receive Date: 20130226
  Receipt Date: 20130311
  Transmission Date: 20140127
  Serious: Yes (Death)
  Sender: FDA-Public Use
  Company Number: CA-FRI-1000042919

PATIENT
  Sex: Female

DRUGS (3)
  1. ROFLUMILAST [Suspect]
     Dosage: 250 MCG Q 2 DAYS
     Route: 048
     Dates: start: 20120615
  2. ROFLUMILAST [Suspect]
     Dosage: 500 MCG QOD
     Route: 048
  3. ROFLUMILAST [Suspect]
     Dosage: 500 MCG
     Route: 048

REACTIONS (2)
  - Death [Fatal]
  - Medication error [Unknown]
